FAERS Safety Report 21597503 (Version 1)
Quarter: 2022Q4

REPORT INFORMATION
  Report Type: Spontaneous
  Country: IL (occurrence: IL)
  Receive Date: 20221115
  Receipt Date: 20221115
  Transmission Date: 20230113
  Serious: Yes (Other)
  Sender: FDA-Public Use
  Company Number: IL-GLAXOSMITHKLINE-IL2022GSK165981

PATIENT
  Age: 51 Year
  Sex: Male

DRUGS (1)
  1. TERBINAFINE [Suspect]
     Active Substance: TERBINAFINE
     Indication: Onychomycosis
     Dosage: 250 MG, QD
     Route: 048

REACTIONS (5)
  - Central serous chorioretinopathy [Recovered/Resolved]
  - Rebound effect [Recovered/Resolved]
  - Subretinal fluid [Recovered/Resolved]
  - Detachment of retinal pigment epithelium [Recovered/Resolved]
  - Chorioretinal disorder [Recovered/Resolved]
